FAERS Safety Report 12916895 (Version 2)
Quarter: 2016Q4

REPORT INFORMATION
  Report Type: Spontaneous
  Country: US (occurrence: US)
  Receive Date: 20161107
  Receipt Date: 20161115
  Transmission Date: 20170207
  Serious: Yes (Other)
  Sender: FDA-Public Use
  Company Number: US-BAYER-2016-207818

PATIENT
  Age: 73 Year
  Sex: Female
  Weight: 107.3 kg

DRUGS (20)
  1. CIPROFLOXACIN HCL [Concomitant]
     Active Substance: CIPROFLOXACIN HYDROCHLORIDE
  2. GABAPENTIN. [Concomitant]
     Active Substance: GABAPENTIN
  3. PAROXETINE. [Concomitant]
     Active Substance: PAROXETINE
  4. PROZAC [Concomitant]
     Active Substance: FLUOXETINE HYDROCHLORIDE
  5. OMEPRAZOLE. [Concomitant]
     Active Substance: OMEPRAZOLE
  6. ALEVE [Suspect]
     Active Substance: NAPROXEN SODIUM
  7. MORPHINE SULFATE. [Suspect]
     Active Substance: MORPHINE SULFATE
  8. FLUCONAZOLE. [Concomitant]
     Active Substance: FLUCONAZOLE
  9. HYDROXYUREA. [Concomitant]
     Active Substance: HYDROXYUREA
  10. WELLBUTRIN [Concomitant]
     Active Substance: BUPROPION HYDROCHLORIDE
  11. LASIX [Concomitant]
     Active Substance: FUROSEMIDE
  12. HYDRALAZINE [Concomitant]
     Active Substance: HYDRALAZINE HYDROCHLORIDE
  13. METFORMIN [Concomitant]
     Active Substance: METFORMIN HYDROCHLORIDE
  14. BAYER GENUINE ASPIRIN [Suspect]
     Active Substance: ASPIRIN
  15. RUXOLITINIB PHOSPHATE [Suspect]
     Active Substance: RUXOLITINIB PHOSPHATE
  16. PROTONIX [Concomitant]
     Active Substance: PANTOPRAZOLE SODIUM
  17. TYLENOL [CHLORPHENAM MAL,DEXTROMET HBR,PARACET,PSEUDOEPH HCL] [Concomitant]
     Active Substance: ACETAMINOPHEN\CHLORPHENIRAMINE\DEXTROMETHORPHAN\PSEUDOEPHEDRINE
  18. PRAMIPEXOLE. [Concomitant]
     Active Substance: PRAMIPEXOLE
  19. FENTANYL. [Concomitant]
     Active Substance: FENTANYL
  20. PREDNISONE. [Concomitant]
     Active Substance: PREDNISONE

REACTIONS (17)
  - Lyme disease [Unknown]
  - Musculoskeletal pain [Unknown]
  - Haematemesis [Unknown]
  - Arthralgia [Unknown]
  - Malaise [Unknown]
  - Mouth haemorrhage [Unknown]
  - Pain in extremity [Unknown]
  - Abasia [Unknown]
  - Incontinence [Unknown]
  - Back pain [Unknown]
  - Feeling abnormal [Unknown]
  - Dyskinesia [Unknown]
  - Gastrooesophageal reflux disease [Unknown]
  - Poor venous access [Unknown]
  - Insomnia [Unknown]
  - Laceration [Unknown]
  - Rash generalised [Unknown]
